FAERS Safety Report 12903197 (Version 2)
Quarter: 2016Q4

REPORT INFORMATION
  Report Type: Spontaneous
  Country: FR (occurrence: FR)
  Receive Date: 20161102
  Receipt Date: 20161209
  Transmission Date: 20170207
  Serious: Yes (Death, Life-Threatening)
  Sender: FDA-Public Use
  Company Number: FR-PFIZER INC-2016502484

PATIENT
  Age: 66 Year
  Sex: Male

DRUGS (5)
  1. IOMERON [Suspect]
     Active Substance: IOMEPROL
     Indication: ARTERIOGRAM LIVER
     Dosage: 250 ML, SINGLE
     Route: 013
     Dates: start: 20160817
  2. CURASPON [Concomitant]
     Indication: HEPATOCELLULAR CARCINOMA
     Dosage: UNK
     Dates: start: 20160817
  3. LIPIODOL [Suspect]
     Active Substance: ETHIODIZED OIL
     Indication: HEPATOCELLULAR CARCINOMA
     Dosage: 10 MG/M2, UNK
     Route: 013
     Dates: start: 20160817
  4. ADRIBLASTINE [Suspect]
     Active Substance: DOXORUBICIN
     Indication: HEPATOCELLULAR CARCINOMA
     Dosage: 70 MG/M2, UNK
     Route: 013
     Dates: start: 20160817, end: 20160817
  5. ADRIBLASTINE [Suspect]
     Active Substance: DOXORUBICIN
     Dosage: UNK
     Route: 013
     Dates: start: 20160817, end: 20160817

REACTIONS (3)
  - Pyrexia [Unknown]
  - Cardio-respiratory arrest [Fatal]
  - Tachypnoea [Unknown]

NARRATIVE: CASE EVENT DATE: 20160818
